FAERS Safety Report 20447589 (Version 5)
Quarter: 2022Q3

REPORT INFORMATION
  Report Type: Report from Study
  Country: US (occurrence: US)
  Receive Date: 20220209
  Receipt Date: 20220817
  Transmission Date: 20221026
  Serious: Yes (Other)
  Sender: FDA-Public Use
  Company Number: US-SHIRE-US202000882

PATIENT
  Sex: Female

DRUGS (1)
  1. HUMAN IMMUNOGLOBULIN G\HYALURONIDASE RECOMBINANT HUMAN [Suspect]
     Active Substance: HUMAN IMMUNOGLOBULIN G\HYALURONIDASE RECOMBINANT HUMAN
     Indication: Primary immunodeficiency syndrome
     Dosage: UNK
     Route: 065

REACTIONS (7)
  - Hepatitis [Unknown]
  - Rheumatoid arthritis [Recovered/Resolved]
  - Therapy interrupted [Unknown]
  - Norovirus infection [Unknown]
  - Fatigue [Unknown]
  - Dyspnoea [Unknown]
  - Myalgia [Unknown]
